FAERS Safety Report 24953492 (Version 2)
Quarter: 2025Q2

REPORT INFORMATION
  Report Type: Spontaneous
  Country: FR (occurrence: FR)
  Receive Date: 20250211
  Receipt Date: 20250506
  Transmission Date: 20250716
  Serious: Yes (Death, Life-Threatening, Hospitalization, Other)
  Sender: JOHNSON AND JOHNSON
  Company Number: FR-JNJFOC-20250209646

PATIENT
  Age: 39 Year
  Sex: Male

DRUGS (6)
  1. HALOPERIDOL [Suspect]
     Active Substance: HALOPERIDOL
     Indication: Schizophrenia
     Route: 065
  2. HALOPERIDOL [Suspect]
     Active Substance: HALOPERIDOL
     Indication: Product used for unknown indication
  3. CYAMEMAZINE [Suspect]
     Active Substance: CYAMEMAZINE
     Indication: Schizophrenia
     Route: 065
  4. CYAMEMAZINE [Suspect]
     Active Substance: CYAMEMAZINE
     Indication: Product used for unknown indication
  5. TROPATEPINE [Suspect]
     Active Substance: TROPATEPINE
     Indication: Product used for unknown indication
  6. TROPATEPINE [Concomitant]
     Active Substance: TROPATEPINE
     Indication: Parkinsonism
     Route: 065

REACTIONS (19)
  - Rhabdomyolysis [Fatal]
  - Renal failure [Fatal]
  - Hyperkalaemia [Fatal]
  - Neuroleptic malignant syndrome [Fatal]
  - Hyperthermia [Fatal]
  - Metabolic acidosis [Fatal]
  - Hepatic cytolysis [Fatal]
  - Hyperferritinaemia [Fatal]
  - Hyperglycaemia [Fatal]
  - Shock [Fatal]
  - Multiple organ dysfunction syndrome [Fatal]
  - Disseminated intravascular coagulation [Fatal]
  - Leukocytosis [Fatal]
  - Coma [Fatal]
  - Mydriasis [Fatal]
  - Hypotension [Fatal]
  - White blood cell disorder [Fatal]
  - Thrombocytopenia [Fatal]
  - Loss of consciousness [Fatal]
